FAERS Safety Report 15605570 (Version 1)
Quarter: 2018Q4

REPORT INFORMATION
  Report Type: Spontaneous
  Country: US (occurrence: US)
  Receive Date: 20181112
  Receipt Date: 20181112
  Transmission Date: 20190205
  Serious: No
  Sender: FDA-Public Use
  Company Number: US-TEVA-2018-US-973086

PATIENT
  Sex: Female

DRUGS (2)
  1. CARBIDOPA AND LEVODOPA ACTAVIS [Suspect]
     Active Substance: CARBIDOPA\LEVODOPA
     Indication: GAIT DISTURBANCE
  2. CARBIDOPA AND LEVODOPA ACTAVIS [Suspect]
     Active Substance: CARBIDOPA\LEVODOPA
     Indication: TREMOR
     Dosage: 25 MG / 100 MG
     Route: 065

REACTIONS (2)
  - Drug effect decreased [Unknown]
  - Product substitution issue [Unknown]
